FAERS Safety Report 12466492 (Version 29)
Quarter: 2023Q2

REPORT INFORMATION
  Report Type: Other
  Country: CA (occurrence: CA)
  Receive Date: 20160615
  Receipt Date: 20230529
  Transmission Date: 20230722
  Serious: Yes (Hospitalization, Other)
  Sender: FDA-Public Use
  Company Number: CA-002147023-PHHY2012CA080720

PATIENT
  Age: 79 Year
  Sex: Female

DRUGS (34)
  1. XOLAIR [Suspect]
     Active Substance: OMALIZUMAB
     Indication: Asthma
     Route: 058
     Dates: start: 20120127
  2. XOLAIR [Suspect]
     Active Substance: OMALIZUMAB
     Route: 058
     Dates: start: 20130226
  3. XOLAIR [Suspect]
     Active Substance: OMALIZUMAB
     Route: 058
     Dates: start: 20130322
  4. XOLAIR [Suspect]
     Active Substance: OMALIZUMAB
     Route: 058
     Dates: start: 20160223
  5. XOLAIR [Suspect]
     Active Substance: OMALIZUMAB
     Route: 058
     Dates: start: 20160414
  6. XOLAIR [Suspect]
     Active Substance: OMALIZUMAB
     Route: 058
     Dates: start: 20160517
  7. XOLAIR [Suspect]
     Active Substance: OMALIZUMAB
     Route: 058
     Dates: start: 20161115
  8. XOLAIR [Suspect]
     Active Substance: OMALIZUMAB
     Route: 058
     Dates: start: 20170613
  9. XOLAIR [Suspect]
     Active Substance: OMALIZUMAB
     Route: 058
     Dates: start: 20170706
  10. XOLAIR [Suspect]
     Active Substance: OMALIZUMAB
     Route: 058
     Dates: start: 20171025
  11. XOLAIR [Suspect]
     Active Substance: OMALIZUMAB
     Route: 058
     Dates: start: 20180117
  12. XOLAIR [Suspect]
     Active Substance: OMALIZUMAB
     Route: 058
     Dates: start: 20180628
  13. XOLAIR [Suspect]
     Active Substance: OMALIZUMAB
     Route: 058
     Dates: start: 20180719
  14. XOLAIR [Suspect]
     Active Substance: OMALIZUMAB
     Route: 058
     Dates: start: 20180808
  15. XOLAIR [Suspect]
     Active Substance: OMALIZUMAB
     Route: 058
     Dates: start: 20181114
  16. XOLAIR [Suspect]
     Active Substance: OMALIZUMAB
     Route: 058
     Dates: start: 20190521
  17. XOLAIR [Suspect]
     Active Substance: OMALIZUMAB
     Route: 058
     Dates: start: 20190605
  18. XOLAIR [Suspect]
     Active Substance: OMALIZUMAB
     Route: 058
     Dates: start: 20190717
  19. XOLAIR [Suspect]
     Active Substance: OMALIZUMAB
     Route: 058
     Dates: start: 20190814
  20. XOLAIR [Suspect]
     Active Substance: OMALIZUMAB
     Route: 058
     Dates: start: 20190911
  21. XOLAIR [Suspect]
     Active Substance: OMALIZUMAB
     Route: 058
     Dates: start: 20200128
  22. XOLAIR [Suspect]
     Active Substance: OMALIZUMAB
     Route: 058
     Dates: start: 20150130
  23. XOLAIR [Suspect]
     Active Substance: OMALIZUMAB
     Route: 058
     Dates: start: 20210505
  24. XOLAIR [Suspect]
     Active Substance: OMALIZUMAB
     Route: 058
  25. XOLAIR [Suspect]
     Active Substance: OMALIZUMAB
     Route: 058
  26. XOLAIR [Suspect]
     Active Substance: OMALIZUMAB
     Route: 058
     Dates: start: 20230403
  27. MORPHINE [Suspect]
     Active Substance: MORPHINE
     Indication: Spinal fracture
     Route: 065
  28. LEVOFLOXACIN [Concomitant]
     Active Substance: LEVOFLOXACIN
     Indication: Product used for unknown indication
     Dosage: 1 DF, QD
     Route: 065
  29. ZENHALE [Concomitant]
     Active Substance: FORMOTEROL FUMARATE\MOMETASONE FUROATE
     Indication: Product used for unknown indication
     Route: 065
  30. ADVAIR HFA [Concomitant]
     Active Substance: FLUTICASONE PROPIONATE\SALMETEROL XINAFOATE
     Indication: Product used for unknown indication
     Dosage: 2 DF, BID
     Route: 065
  31. SPIRIVA [Concomitant]
     Active Substance: TIOTROPIUM BROMIDE MONOHYDRATE
     Indication: Product used for unknown indication
     Dosage: 2 DF, QD
     Route: 065
  32. VENTOLIN [Concomitant]
     Active Substance: ALBUTEROL SULFATE
     Indication: Product used for unknown indication
     Dosage: UNK UNK, PRN
     Route: 065
  33. ALVESCO [Concomitant]
     Active Substance: CICLESONIDE
     Indication: Product used for unknown indication
     Route: 065
  34. SINGULAIR [Concomitant]
     Active Substance: MONTELUKAST SODIUM
     Indication: Product used for unknown indication
     Dosage: UNK UNK, QD
     Route: 065

REACTIONS (43)
  - Pneumonia [Unknown]
  - Fall [Unknown]
  - Lung disorder [Unknown]
  - Wound infection [Recovering/Resolving]
  - Rib fracture [Unknown]
  - Anaemia [Unknown]
  - Pyometra [Unknown]
  - Multiple fractures [Recovering/Resolving]
  - Bronchiectasis [Unknown]
  - Spinal fracture [Unknown]
  - Wrist fracture [Recovered/Resolved]
  - Forced expiratory volume decreased [Unknown]
  - Malaise [Unknown]
  - Forearm fracture [Unknown]
  - Blood pressure systolic increased [Not Recovered/Not Resolved]
  - Skin laceration [Recovering/Resolving]
  - Head banging [Recovering/Resolving]
  - Fear of injection [Unknown]
  - Insomnia [Unknown]
  - Dyspnoea exertional [Recovering/Resolving]
  - Wheezing [Unknown]
  - Productive cough [Recovering/Resolving]
  - Sputum discoloured [Unknown]
  - Gait disturbance [Unknown]
  - Fall [Unknown]
  - Constipation [Unknown]
  - Pain in extremity [Unknown]
  - Uterine mass [Unknown]
  - Chronic obstructive pulmonary disease [Recovering/Resolving]
  - Humidity intolerance [Recovering/Resolving]
  - Back pain [Recovering/Resolving]
  - Asthenia [Unknown]
  - Mobility decreased [Unknown]
  - Hypertension [Unknown]
  - Rash [Unknown]
  - Erythema [Unknown]
  - Rash pruritic [Unknown]
  - Nasopharyngitis [Unknown]
  - Hypersensitivity [Unknown]
  - Cough [Recovered/Resolved]
  - Asthma [Unknown]
  - Dyspnoea [Unknown]
  - Lung disorder [Unknown]

NARRATIVE: CASE EVENT DATE: 20120801
